FAERS Safety Report 6222449-7 (Version None)
Quarter: 2009Q2

REPORT INFORMATION
  Report Type: 
  Country: None (occurrence: None)
  Receive Date: 20090608
  Receipt Date: 20090525
  Transmission Date: 20091009
  Serious: Yes (Other)
  Sender: FDA-Public Use
  Company Number: JP-GENENTECH-262390

PATIENT
  Sex: Male
  Weight: 56 kg

DRUGS (6)
  1. AVASTIN [Suspect]
     Indication: COLON CANCER RECURRENT
     Dosage: 5 MG/KG, Q3W
     Route: 041
     Dates: start: 20080129, end: 20081020
  2. IRINOTECAN HCL [Suspect]
     Indication: COLON CANCER RECURRENT
     Dosage: 200 MG, Q3W
     Route: 041
     Dates: start: 20080129
  3. FLUOROURACIL [Suspect]
     Indication: COLON CANCER RECURRENT
     Dosage: 500 MG, Q3W
     Dates: start: 20080129
  4. CALCIUM LEVOFOLINATE [Suspect]
     Indication: COLON CANCER RECURRENT
     Dosage: 250 MG, Q3W
     Route: 041
     Dates: start: 20080129
  5. DECADRON [Concomitant]
     Indication: DRUG USE FOR UNKNOWN INDICATION
     Dosage: UNK
     Dates: start: 20070306
  6. KYTRIL [Concomitant]
     Indication: DRUG USE FOR UNKNOWN INDICATION
     Dosage: UNK
     Dates: start: 20070306

REACTIONS (1)
  - CONVULSION [None]
